FAERS Safety Report 5919501-X (Version None)
Quarter: 2008Q4

REPORT INFORMATION
  Report Type: 
  Country: None (occurrence: None)
  Receive Date: 20081014
  Receipt Date: 20081014
  Transmission Date: 20090506
  Serious: Yes (Disabling, Other)
  Sender: FDA-Public Use
  Company Number: None

PATIENT
  Age: 38 Year
  Sex: Female
  Weight: 97.5234 kg

DRUGS (1)
  1. MIRENA [Suspect]
     Indication: MENORRHAGIA
     Dosage: WAS AN IMPLANT!
     Dates: start: 20071101, end: 20081014

REACTIONS (12)
  - ABDOMINAL PAIN [None]
  - DYSMENORRHOEA [None]
  - EATING DISORDER [None]
  - FATIGUE [None]
  - FOOD CRAVING [None]
  - HEADACHE [None]
  - HIRSUTISM [None]
  - HOT FLUSH [None]
  - HYPOAESTHESIA [None]
  - MOOD SWINGS [None]
  - VULVOVAGINAL DISCOMFORT [None]
  - WEIGHT INCREASED [None]
